FAERS Safety Report 20727030 (Version 1)
Quarter: 2022Q2

REPORT INFORMATION
  Report Type: Spontaneous
  Country: GB (occurrence: GB)
  Receive Date: 20220419
  Receipt Date: 20220419
  Transmission Date: 20220720
  Serious: Yes (Hospitalization)
  Sender: FDA-Public Use
  Company Number: GB-VERTEX PHARMACEUTICALS-2021-004842

PATIENT
  Sex: Male

DRUGS (13)
  1. ELEXACAFTOR\IVACAFTOR\TEZACAFTOR [Suspect]
     Active Substance: ELEXACAFTOR\IVACAFTOR\TEZACAFTOR
     Indication: Cystic fibrosis
     Dosage: UNK
     Route: 048
  2. ELEXACAFTOR\IVACAFTOR\TEZACAFTOR [Suspect]
     Active Substance: ELEXACAFTOR\IVACAFTOR\TEZACAFTOR
     Dosage: ONE HALF TABLET ONCE DAILY
     Route: 048
  3. ELEXACAFTOR\IVACAFTOR\TEZACAFTOR [Suspect]
     Active Substance: ELEXACAFTOR\IVACAFTOR\TEZACAFTOR
     Dosage: ONE EIGHTH TABLET ONCE DAILY
     Route: 048
  4. ELEXACAFTOR\IVACAFTOR\TEZACAFTOR [Suspect]
     Active Substance: ELEXACAFTOR\IVACAFTOR\TEZACAFTOR
     Dosage: TITRATED TO FULL DOSE
     Route: 048
  5. KALYDECO [Suspect]
     Active Substance: IVACAFTOR
     Indication: Cystic fibrosis
     Dosage: UNK
     Route: 048
  6. KALYDECO [Suspect]
     Active Substance: IVACAFTOR
     Dosage: ONE HALF TABLET ONCE DAILY
     Route: 048
  7. KALYDECO [Suspect]
     Active Substance: IVACAFTOR
     Dosage: ONE EIGHTH TABLET ONCE DAILY
     Route: 048
  8. KALYDECO [Suspect]
     Active Substance: IVACAFTOR
     Dosage: TITRATED TO FULL DOSE
     Route: 048
  9. MEROPENEM [Concomitant]
     Active Substance: MEROPENEM
  10. CARBOCYSTEINE [Concomitant]
     Active Substance: CARBOCYSTEINE
  11. TOBRAMYCIN [Concomitant]
     Active Substance: TOBRAMYCIN
  12. DORNASE ALFA [Concomitant]
     Active Substance: DORNASE ALFA
  13. SODIUM CHLORIDE [Concomitant]
     Active Substance: SODIUM CHLORIDE

REACTIONS (8)
  - Pyrexia [Recovered/Resolved]
  - Urticaria [Recovered/Resolved]
  - Periorbital oedema [Unknown]
  - Lymphopenia [Unknown]
  - Thrombocytopenia [Unknown]
  - Infective pulmonary exacerbation of cystic fibrosis [Recovered/Resolved]
  - Productive cough [Recovered/Resolved]
  - C-reactive protein increased [Unknown]
